FAERS Safety Report 13347286 (Version 1)
Quarter: 2017Q1

REPORT INFORMATION
  Report Type: Spontaneous
  Country: US (occurrence: US)
  Receive Date: 20170317
  Receipt Date: 20170317
  Transmission Date: 20170428
  Serious: Yes (Hospitalization, Other)
  Sender: FDA-Public Use
  Company Number: US-ALEXION PHARMACEUTICALS INC.-A201702456

PATIENT
  Age: 3 Year
  Sex: Female
  Weight: 14.88 kg

DRUGS (2)
  1. STRENSIQ [Suspect]
     Active Substance: ASFOTASE ALFA
     Indication: HYPOPHOSPHATASIA
     Dosage: UNK
     Route: 058
  2. STRENSIQ [Suspect]
     Active Substance: ASFOTASE ALFA
     Dosage: 0.65 ML FROM A 28 MG/0.7 ML, TIW
     Route: 058

REACTIONS (2)
  - Fall [Recovered/Resolved]
  - Facial bones fracture [Unknown]

NARRATIVE: CASE EVENT DATE: 20170223
